FAERS Safety Report 26078024 (Version 1)
Quarter: 2025Q4

REPORT INFORMATION
  Report Type: Spontaneous
  Country: PA (occurrence: PA)
  Receive Date: 20251122
  Receipt Date: 20251122
  Transmission Date: 20260117
  Serious: Yes (Other)
  Sender: NOVARTIS
  Company Number: PA-002147023-NVSC2025PA178206

PATIENT
  Sex: Female

DRUGS (1)
  1. KISQALI [Suspect]
     Active Substance: RIBOCICLIB SUCCINATE
     Indication: Breast cancer metastatic
     Dosage: 400 MG, QD
     Route: 048

REACTIONS (2)
  - Ascites [Not Recovered/Not Resolved]
  - Blood bilirubin increased [Not Recovered/Not Resolved]
